FAERS Safety Report 8866861 (Version 1)
Quarter: 2012Q4

REPORT INFORMATION
  Report Type: 
  Country: US (occurrence: US)
  Receive Date: 20121025
  Receipt Date: 20121025
  Transmission Date: 20130627
  Serious: No
  Sender: FDA-Public Use
  Company Number: US-AMGEN-USASP2012013625

PATIENT
  Age: 61 Year
  Sex: Female

DRUGS (8)
  1. ENBREL [Suspect]
     Indication: PRODUCT USED FOR UNKNOWN INDICATION
     Dosage: 50 mg, qwk
     Route: 058
  2. VICODIN [Concomitant]
  3. MOBIC [Concomitant]
     Dosage: 7.5 mg, UNK
  4. CALCIUM [Concomitant]
  5. FISH OIL [Concomitant]
  6. VITAMIN B C COMPLEX [Concomitant]
  7. MULTIVITAMIN                       /00097801/ [Concomitant]
  8. BENADRYL                           /00000402/ [Concomitant]
     Dosage: 25 mg, UNK

REACTIONS (2)
  - Injection site reaction [Unknown]
  - Injection site erythema [Unknown]
